FAERS Safety Report 19947574 (Version 2)
Quarter: 2021Q4

REPORT INFORMATION
  Report Type: Report from Study
  Country: IL (occurrence: IL)
  Receive Date: 20211012
  Receipt Date: 20211222
  Transmission Date: 20220303
  Serious: Yes (Hospitalization)
  Sender: FDA-Public Use
  Company Number: IL-ABBVIE-21K-082-4116524-00

PATIENT
  Age: 67 Year
  Sex: Female
  Weight: 63 kg

DRUGS (27)
  1. VENETOCLAX [Suspect]
     Active Substance: VENETOCLAX
     Indication: Chronic lymphocytic leukaemia
     Route: 048
     Dates: start: 20210712, end: 20210726
  2. VENETOCLAX [Suspect]
     Active Substance: VENETOCLAX
     Route: 048
     Dates: start: 20210902, end: 20210927
  3. VENETOCLAX [Suspect]
     Active Substance: VENETOCLAX
     Route: 048
     Dates: start: 20210928, end: 20211009
  4. VENETOCLAX [Suspect]
     Active Substance: VENETOCLAX
     Route: 048
     Dates: start: 20211010, end: 20211017
  5. VENETOCLAX [Suspect]
     Active Substance: VENETOCLAX
     Route: 048
     Dates: start: 20211018
  6. OBINUTUZUMAB [Suspect]
     Active Substance: OBINUTUZUMAB
     Indication: B-cell lymphoma
     Route: 065
     Dates: start: 20210621, end: 20210621
  7. OBINUTUZUMAB [Suspect]
     Active Substance: OBINUTUZUMAB
     Route: 065
     Dates: start: 20210622, end: 20210622
  8. OBINUTUZUMAB [Suspect]
     Active Substance: OBINUTUZUMAB
     Route: 065
     Dates: start: 20210628, end: 20210628
  9. OBINUTUZUMAB [Suspect]
     Active Substance: OBINUTUZUMAB
     Route: 065
     Dates: start: 20210706, end: 20210706
  10. OBINUTUZUMAB [Suspect]
     Active Substance: OBINUTUZUMAB
     Route: 065
     Dates: start: 20210720, end: 20210720
  11. ALLOPURINOL [Concomitant]
     Active Substance: ALLOPURINOL
     Indication: Prophylaxis
     Dates: start: 20210712, end: 20210712
  12. ASPIRIN [Concomitant]
     Active Substance: ASPIRIN
     Indication: Myocardial ischaemia
     Dates: start: 202011
  13. PREDNISONE [Concomitant]
     Active Substance: PREDNISONE
     Indication: Myocardial ischaemia
     Dates: start: 202011, end: 20210616
  14. PREDNISONE [Concomitant]
     Active Substance: PREDNISONE
     Indication: Coombs positive haemolytic anaemia
     Dates: start: 20210617, end: 20210711
  15. PREDNISONE [Concomitant]
     Active Substance: PREDNISONE
     Dates: start: 20210712, end: 20210715
  16. PREDNISONE [Concomitant]
     Active Substance: PREDNISONE
     Dates: start: 20210716, end: 20210726
  17. PREDNISONE [Concomitant]
     Active Substance: PREDNISONE
     Dates: start: 20210803, end: 20211020
  18. BRILINTA [Concomitant]
     Active Substance: TICAGRELOR
     Indication: Myocardial ischaemia
     Dates: start: 202011
  19. LIPITOR [Concomitant]
     Active Substance: ATORVASTATIN CALCIUM
     Indication: Hyperlipidaemia
     Dates: start: 202011
  20. EZETIMIBE [Concomitant]
     Active Substance: EZETIMIBE
     Indication: Hyperlipidaemia
     Dates: start: 202011
  21. BISOPROLOL FUMARATE [Concomitant]
     Active Substance: BISOPROLOL FUMARATE
     Indication: Hyperlipidaemia
     Dates: start: 202011
  22. DEXAMETHASONE [Concomitant]
     Active Substance: DEXAMETHASONE
     Indication: Premedication
     Dates: start: 20210628, end: 20210628
  23. DEXAMETHASONE [Concomitant]
     Active Substance: DEXAMETHASONE
     Dates: start: 20210621, end: 20210622
  24. DEXAMETHASONE [Concomitant]
     Active Substance: DEXAMETHASONE
     Dates: start: 20210706, end: 20210720
  25. PROMETHAZINE [Concomitant]
     Active Substance: PROMETHAZINE HYDROCHLORIDE
     Indication: Premedication
     Dates: start: 20210628, end: 20210628
  26. PROMETHAZINE [Concomitant]
     Active Substance: PROMETHAZINE HYDROCHLORIDE
     Dates: start: 20210621, end: 20210622
  27. PROMETHAZINE [Concomitant]
     Active Substance: PROMETHAZINE HYDROCHLORIDE
     Dates: start: 20210706, end: 20210720

REACTIONS (1)
  - Dyspnoea [Recovered/Resolved]

NARRATIVE: CASE EVENT DATE: 20210727
